FAERS Safety Report 12980848 (Version 1)
Quarter: 2016Q4

REPORT INFORMATION
  Report Type: Not Available
  Country: ES (occurrence: ES)
  Receive Date: 20161128
  Receipt Date: 20161128
  Transmission Date: 20170207
  Serious: Yes (Hospitalization)
  Sender: FDA-Public Use
  Company Number: ES-PURDUE-GBR-2016-0041887

PATIENT
  Age: 80 Year
  Sex: Male

DRUGS (1)
  1. MST CONTINUS [Suspect]
     Active Substance: MORPHINE SULFATE
     Indication: PRODUCT USED FOR UNKNOWN INDICATION
     Dosage: UNK [STRENGTH 15 MG]
     Route: 048
     Dates: start: 201610, end: 20161006

REACTIONS (3)
  - Confusional state [Recovered/Resolved]
  - Urinary incontinence [Recovered/Resolved]
  - Incorrect product formulation administered [Recovered/Resolved]

NARRATIVE: CASE EVENT DATE: 20161006
